FAERS Safety Report 17589763 (Version 1)
Quarter: 2020Q1

REPORT INFORMATION
  Report Type: Spontaneous
  Country: US (occurrence: US)
  Receive Date: 20200327
  Receipt Date: 20200327
  Transmission Date: 20200409
  Serious: No
  Sender: FDA-Public Use
  Company Number: US-ALLERGAN-1947481US

PATIENT
  Age: 79 Year
  Sex: Female

DRUGS (2)
  1. LUMIGAN [Suspect]
     Active Substance: BIMATOPROST
     Indication: INTRAOCULAR PRESSURE TEST
     Dosage: 2 GTT, QD
     Route: 047
  2. DORZOLAMIDE [Concomitant]
     Active Substance: DORZOLAMIDE
     Dosage: UNK
     Route: 047

REACTIONS (4)
  - Product packaging issue [Unknown]
  - Incorrect dose administered by product [Unknown]
  - Product dose omission [Unknown]
  - Product design issue [Unknown]
